FAERS Safety Report 6525057-3 (Version None)
Quarter: 2009Q4

REPORT INFORMATION
  Report Type: 
  Country: None (occurrence: None)
  Receive Date: 20091223
  Receipt Date: 20091211
  Transmission Date: 20100525
  Serious: Yes (Hospitalization, Other)
  Sender: FDA-Public Use
  Company Number: A-NJ2009-26877

PATIENT
  Age: 71 Year
  Sex: Female

DRUGS (1)
  1. TRACLEER [Suspect]
     Indication: PULMONARY ARTERIAL HYPERTENSION
     Dosage: ORAL
     Route: 048
     Dates: start: 20090807, end: 20091101

REACTIONS (10)
  - CHRONIC OBSTRUCTIVE PULMONARY DISEASE [None]
  - CONDITION AGGRAVATED [None]
  - FATIGUE [None]
  - FLUSHING [None]
  - HEART RATE INCREASED [None]
  - NUCHAL RIGIDITY [None]
  - OEDEMA PERIPHERAL [None]
  - OFF LABEL USE [None]
  - PALPITATIONS [None]
  - SWELLING [None]
